FAERS Safety Report 12419545 (Version 3)
Quarter: 2016Q3

REPORT INFORMATION
  Report Type: Spontaneous
  Country: US (occurrence: US)
  Receive Date: 20160531
  Receipt Date: 20160708
  Transmission Date: 20161109
  Serious: Yes (Hospitalization)
  Sender: FDA-Public Use
  Company Number: US-BAXTER-2016BAX028214

PATIENT
  Sex: Female

DRUGS (2)
  1. DIANEAL LOW CALCIUM PERITONEAL DIALYSIS SOLUTION WITH DEXTROSE [Suspect]
     Active Substance: CALCIUM CHLORIDE\DEXTROSE\MAGNESIUM CHLORIDE\SODIUM CHLORIDE\SODIUM LACTATE
     Indication: PERITONEAL DIALYSIS
     Dosage: 1 BAG
     Route: 033
     Dates: start: 20160106
  2. DIANEAL LOW CALCIUM PERITONEAL DIALYSIS SOLUTION WITH DEXTROSE [Suspect]
     Active Substance: CALCIUM CHLORIDE\DEXTROSE\MAGNESIUM CHLORIDE\SODIUM CHLORIDE\SODIUM LACTATE
     Indication: PERITONEAL DIALYSIS
     Dosage: 1 BAG
     Route: 033
     Dates: start: 20160106

REACTIONS (10)
  - Condition aggravated [Recovering/Resolving]
  - Blood count abnormal [Unknown]
  - Vomiting [Unknown]
  - Swelling [Unknown]
  - Cardiac failure congestive [Unknown]
  - Haemoglobin decreased [Recovering/Resolving]
  - International normalised ratio decreased [Recovering/Resolving]
  - Malaise [Unknown]
  - Oedema [Unknown]
  - Endocarditis [Recovering/Resolving]

NARRATIVE: CASE EVENT DATE: 2016
